FAERS Safety Report 4330979-8 (Version None)
Quarter: 2004Q1

REPORT INFORMATION
  Report Type: 
  Country: None (occurrence: None)
  Receive Date: 20040329
  Receipt Date: 20040311
  Transmission Date: 20041129
  Serious: Yes (Disabling)
  Sender: FDA-Public Use
  Company Number: 2004-BP-01592AU

PATIENT
  Age: 76 Year
  Sex: Female

DRUGS (2)
  1. SPIRIVA [Suspect]
     Indication: CHRONIC OBSTRUCTIVE AIRWAYS DISEASE
     Dosage: 18 MCG (18 MCG, 1 DAILY) IH
     Route: 055
     Dates: start: 20040113, end: 20040117
  2. PULMICORT [Concomitant]

REACTIONS (2)
  - DYSPNOEA EXACERBATED [None]
  - FEELING ABNORMAL [None]
